FAERS Safety Report 12178926 (Version 2)
Quarter: 2016Q2

REPORT INFORMATION
  Report Type: Spontaneous
  Country: TW (occurrence: TW)
  Receive Date: 20160315
  Receipt Date: 20160401
  Transmission Date: 20160815
  Serious: Yes (Hospitalization, Other)
  Sender: FDA-Public Use
  Company Number: ALCN2016TW001931

PATIENT
  Age: 58 Year
  Sex: Male

DRUGS (5)
  1. AMPHOTERICIN B. [Concomitant]
     Active Substance: AMPHOTERICIN B
     Indication: KERATITIS FUNGAL
     Dosage: 1 DF, QH
     Route: 047
  2. VIGAMOX [Suspect]
     Active Substance: MOXIFLOXACIN HYDROCHLORIDE
     Indication: CONJUNCTIVITIS BACTERIAL
     Dosage: UNK, UNK
     Route: 047
  3. NATAMYCIN [Suspect]
     Active Substance: NATAMYCIN
     Indication: ULCERATIVE KERATITIS
     Dosage: 1 GTT, QH
     Route: 047
  4. ATROPINE. [Concomitant]
     Active Substance: ATROPINE
     Indication: ULCERATIVE KERATITIS
     Dosage: 1 GTT, BID
     Route: 047
  5. NATAMYCIN [Suspect]
     Active Substance: NATAMYCIN
     Indication: KERATITIS FUNGAL

REACTIONS (4)
  - Condition aggravated [Recovered/Resolved with Sequelae]
  - Ulcerative keratitis [Recovered/Resolved with Sequelae]
  - Eye pain [Recovered/Resolved]
  - Drug ineffective [Recovered/Resolved]
